FAERS Safety Report 6249065-5 (Version None)
Quarter: 2009Q2

REPORT INFORMATION
  Report Type: 
  Country: None (occurrence: None)
  Receive Date: 20090629
  Receipt Date: 20090618
  Transmission Date: 20091009
  Serious: Yes (Other)
  Sender: FDA-Public Use
  Company Number: US-AVENTIS-200915422US

PATIENT
  Sex: Male

DRUGS (5)
  1. LANTUS [Suspect]
     Route: 058
  2. OPTICLIK (INSULIN INJECTION PEN) [Suspect]
  3. ANTIHYPERTENSIVES [Concomitant]
     Dosage: DOSE: UNK
  4. CHOLESTEROL- AND TRIGLYCERIDE REDUCERS [Concomitant]
     Dosage: DOSE: UNK
  5. OPHTHALMOLOGICALS [Concomitant]
     Dosage: DOSE: UNK
     Route: 047

REACTIONS (3)
  - CATARACT [None]
  - RETINAL DISORDER [None]
  - VISUAL IMPAIRMENT [None]
